FAERS Safety Report 18379863 (Version 4)
Quarter: 2020Q4

REPORT INFORMATION
  Report Type: Spontaneous
  Country: BG (occurrence: BG)
  Receive Date: 20201014
  Receipt Date: 20201221
  Transmission Date: 20210114
  Serious: Yes (Death, Hospitalization, Other)
  Sender: FDA-Public Use
  Company Number: BG-AMGEN-BGRSP2020163894

PATIENT
  Age: 6 Year
  Sex: Female
  Weight: 20 kg

DRUGS (8)
  1. PLATELETS [Concomitant]
     Active Substance: HUMAN PLATELET, ALLOGENIC
  2. ENALAPRIL [Suspect]
     Active Substance: ENALAPRIL
     Indication: PRODUCT USED FOR UNKNOWN INDICATION
     Dosage: UNK
     Route: 065
     Dates: start: 20200924
  3. AMLODIPINE [Suspect]
     Active Substance: AMLODIPINE BESYLATE
     Indication: PRODUCT USED FOR UNKNOWN INDICATION
     Dosage: UNK
     Route: 065
     Dates: start: 20200924
  4. ERYTHROCYTES [Concomitant]
     Active Substance: HUMAN RED BLOOD CELL
  5. BLINCYTO [Suspect]
     Active Substance: BLINATUMOMAB
     Indication: B PRECURSOR TYPE ACUTE LEUKAEMIA
     Dosage: UNK
     Route: 042
     Dates: start: 20200924
  6. FURANTRIL [Suspect]
     Active Substance: FUROSEMIDE
     Indication: PRODUCT USED FOR UNKNOWN INDICATION
     Dosage: UNK
     Route: 065
     Dates: start: 20200924
  7. IMMUNOVENIN [Concomitant]
     Active Substance: HUMAN IMMUNOGLOBULIN G
     Dosage: UNK
     Dates: start: 202001
  8. SPIRONOLACTON [Suspect]
     Active Substance: SPIRONOLACTONE
     Indication: PRODUCT USED FOR UNKNOWN INDICATION
     Dosage: UNK
     Route: 065
     Dates: start: 20200924

REACTIONS (22)
  - Acute respiratory failure [Fatal]
  - Pericardial effusion [Unknown]
  - Platelet count decreased [Unknown]
  - Acute lymphocytic leukaemia recurrent [Unknown]
  - Face oedema [Recovered/Resolved]
  - Pyrexia [Recovered/Resolved]
  - Circulatory collapse [Fatal]
  - Multiple organ dysfunction syndrome [Unknown]
  - Pleural effusion [Unknown]
  - Catheter site haemorrhage [Recovered/Resolved]
  - Leukaemic infiltration renal [Unknown]
  - Blood pressure increased [Recovered/Resolved]
  - Haptoglobin decreased [Unknown]
  - Pneumothorax [Unknown]
  - Irritability [Recovered/Resolved]
  - Muscle twitching [Unknown]
  - Somnolence [Recovered/Resolved]
  - Acute kidney injury [Unknown]
  - Melaena [Recovered/Resolved]
  - Vomiting [Unknown]
  - Haemorrhagic disorder [Unknown]
  - Interleukin level increased [Unknown]

NARRATIVE: CASE EVENT DATE: 20200924
